FAERS Safety Report 8453178-7 (Version None)
Quarter: 2012Q2

REPORT INFORMATION
  Report Type: 
  Country: None (occurrence: None)
  Receive Date: 20120620
  Receipt Date: 20120509
  Transmission Date: 20120825
  Serious: No
  Sender: FDA-Public Use
  Company Number: US-VERTEX PHARMACEUTICALS INC.-AE-2012-006857

PATIENT
  Sex: Female
  Weight: 100.79 kg

DRUGS (9)
  1. LISINOPRIL AND HYDROCHLOROTHIAZIDE [Concomitant]
     Indication: HYPERTENSION
     Route: 048
  2. INCIVEK [Suspect]
     Indication: HEPATITIS C
     Route: 048
     Dates: start: 20120316
  3. RIBAVIRIN [Concomitant]
     Indication: HEPATITIS C
     Dates: start: 20120316
  4. CALCIUM/VITAMIN D [Concomitant]
     Indication: MEDICAL DIET
     Route: 048
  5. PEGASYS [Concomitant]
     Indication: HEPATITIS C
     Route: 058
     Dates: start: 20120316
  6. CELEXA [Concomitant]
     Indication: DEPRESSION
     Route: 048
  7. STOOL SOFTNER [Concomitant]
     Indication: CONSTIPATION
     Route: 048
  8. ASCORBIC ACID [Concomitant]
     Indication: MEDICAL DIET
     Route: 048
  9. RANITIDINE [Concomitant]
     Indication: GASTROOESOPHAGEAL REFLUX DISEASE
     Route: 048

REACTIONS (1)
  - HEADACHE [None]
